APPROVED DRUG PRODUCT: OXYCODONE HYDROCHLORIDE
Active Ingredient: OXYCODONE HYDROCHLORIDE
Strength: 20MG
Dosage Form/Route: TABLET;ORAL
Application: A091393 | Product #004 | TE Code: AB
Applicant: AVANTHI INC
Approved: Aug 31, 2009 | RLD: No | RS: No | Type: RX